FAERS Safety Report 4780459-0 (Version None)
Quarter: 2005Q3

REPORT INFORMATION
  Report Type: 
  Country: None (occurrence: None)
  Receive Date: 20050927
  Receipt Date: 20050912
  Transmission Date: 20060218
  Serious: Yes (Hospitalization)
  Sender: FDA-Public Use
  Company Number: SEWYE967912SEP05

PATIENT
  Sex: Female

DRUGS (4)
  1. ENBREL [Suspect]
     Indication: RHEUMATOID ARTHRITIS
     Dosage: DOSE REGIMEN WAS NOT SPECIFIED
     Route: 058
     Dates: start: 20040901, end: 20050601
  2. COZAAR [Concomitant]
     Dosage: DOSE REGIMEN WAS NOT SPECIFIED
     Route: 048
  3. INDOMETHACIN [Concomitant]
     Dosage: DOSE REGIMEN WAS NOT SPECIFIED
     Route: 054
  4. ARAVA [Concomitant]
     Dosage: DOSE REGIMEN WAS NOT SPECIFIED
     Route: 048

REACTIONS (2)
  - DIPLOPIA [None]
  - MULTIPLE SCLEROSIS [None]
